FAERS Safety Report 16577795 (Version 2)
Quarter: 2019Q3

REPORT INFORMATION
  Report Type: Spontaneous
  Country: US (occurrence: US)
  Receive Date: 20190716
  Receipt Date: 20190809
  Transmission Date: 20191004
  Serious: Yes (Other)
  Sender: FDA-Public Use
  Company Number: US-ACS-001465

PATIENT
  Age: 63 Year
  Sex: Female

DRUGS (1)
  1. CEFUROXIME SOLUTION [Suspect]
     Active Substance: CEFUROXIME
     Indication: INFECTION PROPHYLAXIS
     Dosage: 1 MG/0.1 ML
     Route: 031

REACTIONS (3)
  - Retinal detachment [Recovered/Resolved]
  - Off label use [Recovered/Resolved]
  - Macular oedema [Recovered/Resolved]
